FAERS Safety Report 8246007-8 (Version None)
Quarter: 2012Q1

REPORT INFORMATION
  Report Type: 
  Country: None (occurrence: None)
  Receive Date: 20120330
  Receipt Date: 20120326
  Transmission Date: 20120608
  Serious: No
  Sender: FDA-Public Use
  Company Number: US-PFIZER INC-2012077504

PATIENT
  Sex: Female
  Weight: 108.8 kg

DRUGS (9)
  1. AMOXICILLIN [Suspect]
     Dosage: UNK
  2. VIBRAMYCIN [Suspect]
     Indication: LYME DISEASE
     Dosage: UNK, 2X/DAY
     Route: 048
     Dates: start: 20120324, end: 20120325
  3. BENICAR [Concomitant]
     Indication: HYPERTENSION
     Dosage: UNK
  4. VIVELLE [Concomitant]
     Indication: HORMONE LEVEL ABNORMAL
     Dosage: UNK
  5. ASCORBIC ACID [Concomitant]
     Dosage: UNK
  6. SYNTHROID [Concomitant]
     Indication: THYROID CANCER
     Dosage: UNK
  7. BENZATHINE PENICILLIN G [Suspect]
     Dosage: UNK
  8. VITAMIN B COMPLEX CAP [Concomitant]
     Dosage: UNK
  9. VITAMIN D [Concomitant]
     Dosage: UNK

REACTIONS (5)
  - PRURITUS [None]
  - CHEST DISCOMFORT [None]
  - DYSPNOEA [None]
  - LIMB DISCOMFORT [None]
  - HYPOAESTHESIA [None]
